FAERS Safety Report 11489864 (Version 1)
Quarter: 2015Q3

REPORT INFORMATION
  Report Type: Spontaneous
  Country: FR (occurrence: FR)
  Receive Date: 20150909
  Receipt Date: 20150909
  Transmission Date: 20151125
  Serious: No
  Sender: FDA-Public Use
  Company Number: FR-JAZZ-JPI-P-014255

PATIENT
  Age: 40 Year
  Sex: Male
  Weight: 120 kg

DRUGS (9)
  1. XYREM [Suspect]
     Active Substance: SODIUM OXYBATE
     Dosage: 10.5 G, QD
     Route: 048
  2. XYREM [Suspect]
     Active Substance: SODIUM OXYBATE
     Dosage: 5 G, BID
     Route: 048
     Dates: start: 20110302, end: 20110330
  3. XYREM [Suspect]
     Active Substance: SODIUM OXYBATE
     Dosage: 5 G, BID
     Route: 048
     Dates: start: 20110624
  4. XYREM [Suspect]
     Active Substance: SODIUM OXYBATE
     Indication: NARCOLEPSY
     Dosage: 2.25 G, BID
     Route: 048
     Dates: start: 20101202, end: 20101222
  5. XYREM [Suspect]
     Active Substance: SODIUM OXYBATE
     Indication: CATAPLEXY
     Dosage: 4.75 G, BID
     Route: 048
     Dates: start: 20101223
  6. XYREM [Suspect]
     Active Substance: SODIUM OXYBATE
     Dosage: 4.5 G, BID
     Route: 048
     Dates: start: 20110331, end: 2011
  7. XYREM [Suspect]
     Active Substance: SODIUM OXYBATE
     Dosage: 5 G, BID ON WEEKDAYS AND DOES NOT ATKE XYREM ON WEEKENDS
     Route: 048
     Dates: start: 2011
  8. XYREM [Suspect]
     Active Substance: SODIUM OXYBATE
     Dosage: 9 G, QD
     Route: 048
  9. XYREM [Suspect]
     Active Substance: SODIUM OXYBATE
     Dosage: 4.5 G, BID
     Route: 048
     Dates: start: 20150407

REACTIONS (5)
  - Inappropriate schedule of drug administration [Unknown]
  - Intentional product misuse [Unknown]
  - Prescribed overdose [Unknown]
  - Weight increased [Recovered/Resolved]
  - Drug ineffective [Unknown]

NARRATIVE: CASE EVENT DATE: 20101223
